FAERS Safety Report 13868553 (Version 1)
Quarter: 2017Q3

REPORT INFORMATION
  Report Type: Spontaneous
  Country: US (occurrence: US)
  Receive Date: 20170815
  Receipt Date: 20170815
  Transmission Date: 20171127
  Serious: Yes (Other)
  Sender: FDA-Public Use
  Company Number: US-BRISTOL-MYERS SQUIBB COMPANY-BMS-2017-070964

PATIENT
  Sex: Female
  Weight: 64.86 kg

DRUGS (1)
  1. ELIQUIS [Suspect]
     Active Substance: APIXABAN
     Indication: CEREBROVASCULAR ACCIDENT PROPHYLAXIS
     Dosage: 5 MG, BID
     Route: 065

REACTIONS (5)
  - Balance disorder [Unknown]
  - Visual impairment [Unknown]
  - Dizziness [Unknown]
  - Loss of consciousness [Unknown]
  - Alopecia [Unknown]
